FAERS Safety Report 9724947 (Version 2)
Quarter: 2013Q4

REPORT INFORMATION
  Report Type: Spontaneous
  Country: BE (occurrence: BE)
  Receive Date: 20131202
  Receipt Date: 20131202
  Transmission Date: 20140711
  Serious: Yes (Death)
  Sender: FDA-Public Use
  Company Number: BE-BAXTER-2013BAX038942

PATIENT
  Sex: Male

DRUGS (6)
  1. EXTRANEAL, SOLUTION POUR DIALYSE P?RITON?ALE [Suspect]
     Indication: HUMAN POLYOMAVIRUS INFECTION
     Route: 033
     Dates: end: 20130904
  2. EXTRANEAL, SOLUTION POUR DIALYSE P?RITON?ALE [Suspect]
     Indication: KIDNEY TRANSPLANT REJECTION
  3. PHYSIONEAL 40 GLUCOSE 1.36% [Suspect]
     Indication: HUMAN POLYOMAVIRUS INFECTION
     Route: 033
     Dates: end: 20130904
  4. PHYSIONEAL 40 GLUCOSE 1.36% [Suspect]
     Indication: KIDNEY TRANSPLANT REJECTION
  5. NUTRINEAL PERITONEAL DIALYSIS 4 ? 1,1 % DACIDES AMIN?S, SOLUTION POUR [Suspect]
     Indication: HUMAN POLYOMAVIRUS INFECTION
     Route: 033
     Dates: end: 20130904
  6. NUTRINEAL PERITONEAL DIALYSIS 4 ? 1,1 % DACIDES AMIN?S, SOLUTION POUR [Suspect]
     Indication: KIDNEY TRANSPLANT REJECTION

REACTIONS (1)
  - Sepsis [Fatal]
